FAERS Safety Report 4941236-0 (Version None)
Quarter: 2006Q1

REPORT INFORMATION
  Report Type: 
  Country: None (occurrence: None)
  Receive Date: 20060313
  Receipt Date: 20051227
  Transmission Date: 20060701
  Serious: Yes (Death, Hospitalization)
  Sender: FDA-Public Use
  Company Number: PHBS2005JP19084

PATIENT
  Age: 63 Year
  Sex: Male
  Weight: 69 kg

DRUGS (4)
  1. GLEEVEC [Suspect]
     Indication: GASTROINTESTINAL STROMAL TUMOUR
     Dosage: 400 MG/D
     Route: 048
     Dates: start: 20050826, end: 20051001
  2. GLEEVEC [Suspect]
     Dosage: 200 MG/D
     Route: 048
     Dates: start: 20051001, end: 20051227
  3. TENORMIN [Concomitant]
  4. CARDENALIN [Concomitant]

REACTIONS (19)
  - ACUTE RESPIRATORY DISTRESS SYNDROME [None]
  - BLOOD CREATININE INCREASED [None]
  - CEREBRAL HAEMORRHAGE [None]
  - CYSTITIS [None]
  - DISSEMINATED INTRAVASCULAR COAGULATION [None]
  - FEELING HOT [None]
  - HAEMORRHAGIC DIATHESIS [None]
  - HEPATIC FAILURE [None]
  - HYPERTENSION [None]
  - MALAISE [None]
  - MULTI-ORGAN FAILURE [None]
  - OLIGURIA [None]
  - PROSTRATION [None]
  - PYELONEPHRITIS [None]
  - PYREXIA [None]
  - RASH [None]
  - RENAL FAILURE ACUTE [None]
  - SEPSIS [None]
  - VISUAL DISTURBANCE [None]
